FAERS Safety Report 5174487-3 (Version None)
Quarter: 2006Q4

REPORT INFORMATION
  Report Type: 
  Country: None (occurrence: None)
  Receive Date: 20061214
  Receipt Date: 20060512
  Transmission Date: 20070319
  Serious: No
  Sender: FDA-Public Use
  Company Number: US-AMGEN-KDL179361

PATIENT
  Sex: Female

DRUGS (5)
  1. ENBREL [Suspect]
     Indication: PSORIATIC ARTHROPATHY
     Route: 065
  2. ADVAIR DISKUS 100/50 [Concomitant]
     Route: 065
  3. CRESTOR [Concomitant]
     Route: 065
  4. TRICOR [Concomitant]
     Route: 065
  5. METFORMIN [Concomitant]
     Route: 065

REACTIONS (2)
  - DIABETES MELLITUS [None]
  - EYE DISORDER [None]
